FAERS Safety Report 10342253 (Version 2)
Quarter: 2014Q3

REPORT INFORMATION
  Report Type: Report from Study
  Country: BR (occurrence: BR)
  Receive Date: 20140725
  Receipt Date: 20140725
  Transmission Date: 20150326
  Serious: Yes (Other)
  Sender: FDA-Public Use
  Company Number: PHHY2014BR061077

PATIENT
  Age: 79 Year
  Sex: Female
  Weight: 60 kg

DRUGS (1)
  1. EXELON PATCH [Suspect]
     Active Substance: RIVASTIGMINE
     Indication: MEMORY IMPAIRMENT
     Dosage: 9.5 MG (PATCH 10CM2), DAILY
     Route: 062
     Dates: start: 201403, end: 201405

REACTIONS (9)
  - Depression [Recovered/Resolved]
  - Feeling of despair [Not Recovered/Not Resolved]
  - Application site reaction [Recovered/Resolved]
  - Application site erythema [Recovered/Resolved]
  - Dementia Alzheimer^s type [Recovering/Resolving]
  - Erythema [Not Recovered/Not Resolved]
  - Hypersensitivity [Not Recovered/Not Resolved]
  - Application site pruritus [Recovered/Resolved]
  - Pruritus generalised [Not Recovered/Not Resolved]

NARRATIVE: CASE EVENT DATE: 201405
